FAERS Safety Report 7987034-5 (Version None)
Quarter: 2011Q4

REPORT INFORMATION
  Report Type: 
  Country: None (occurrence: None)
  Receive Date: 20111216
  Receipt Date: 20110414
  Transmission Date: 20120403
  Serious: No
  Sender: FDA-Public Use
  Company Number: US-BRISTOL-MYERS SQUIBB COMPANY-15606924

PATIENT
  Age: 44 Year
  Sex: Male

DRUGS (2)
  1. CYMBALTA [Concomitant]
  2. ABILIFY [Suspect]

REACTIONS (3)
  - AGITATION [None]
  - HEART RATE INCREASED [None]
  - HYPERHIDROSIS [None]
